FAERS Safety Report 10450205 (Version 1)
Quarter: 2014Q3

REPORT INFORMATION
  Report Type: Spontaneous
  Country: US (occurrence: None)
  Receive Date: 20140911
  Receipt Date: 20140911
  Transmission Date: 20150326
  Serious: Yes (Hospitalization)
  Sender: FDA-Public Use
  Company Number: None

PATIENT
  Age: 23 Year
  Sex: Female
  Weight: 59.24 kg

DRUGS (1)
  1. HUMIRA [Suspect]
     Active Substance: ADALIMUMAB
     Indication: RHEUMATOID ARTHRITIS
     Route: 058
     Dates: start: 20140810

REACTIONS (8)
  - Dysphemia [None]
  - Unresponsive to stimuli [None]
  - Muscular weakness [None]
  - Pupillary reflex impaired [None]
  - Loss of consciousness [None]
  - Dizziness [None]
  - Muscle twitching [None]
  - Feeling abnormal [None]

NARRATIVE: CASE EVENT DATE: 20140810
